FAERS Safety Report 24189402 (Version 1)
Quarter: 2024Q3

REPORT INFORMATION
  Report Type: Spontaneous
  Country: US (occurrence: US)
  Receive Date: 20240808
  Receipt Date: 20240808
  Transmission Date: 20241017
  Serious: Yes (Other)
  Sender: NOVARTIS
  Company Number: US-002147023-NVSC2024US155609

PATIENT
  Sex: Female
  Weight: 43.5 kg

DRUGS (2)
  1. COSENTYX [Suspect]
     Active Substance: SECUKINUMAB
     Indication: Ankylosing spondylitis
     Dosage: UNK
     Route: 065
  2. ENBREL [Suspect]
     Active Substance: BENZYL ALCOHOL\ETANERCEPT
     Indication: Product used for unknown indication
     Dosage: UNK
     Route: 065

REACTIONS (16)
  - Ankylosing spondylitis [Unknown]
  - Arthralgia [Unknown]
  - Back disorder [Unknown]
  - Illness [Unknown]
  - Pain in jaw [Unknown]
  - Back pain [Unknown]
  - Episcleritis [Unknown]
  - Fatigue [Unknown]
  - Neck pain [Unknown]
  - Pain in extremity [Unknown]
  - Enthesopathy [Unknown]
  - Costochondritis [Unknown]
  - Swelling [Unknown]
  - Inflammation [Unknown]
  - Sleep deficit [Unknown]
  - Drug ineffective [Unknown]
